FAERS Safety Report 4830646-8 (Version None)
Quarter: 2005Q4

REPORT INFORMATION
  Report Type: 
  Country: None (occurrence: None)
  Receive Date: 20051114
  Receipt Date: 20051102
  Transmission Date: 20060501
  Serious: Yes (Hospitalization)
  Sender: FDA-Public Use
  Company Number: 2005150000

PATIENT
  Age: 2 Year
  Sex: Female

DRUGS (1)
  1. VISINE EYE DROPS [Suspect]
     Indication: ACCIDENTAL EXPOSURE
     Dosage: 3 ML ONCE, ORAL
     Route: 048
     Dates: start: 20050901, end: 20050901

REACTIONS (5)
  - ACCIDENTAL EXPOSURE [None]
  - BLOOD PRESSURE DECREASED [None]
  - DEPRESSED LEVEL OF CONSCIOUSNESS [None]
  - HEART RATE DECREASED [None]
  - SOMNOLENCE [None]
